FAERS Safety Report 8980478 (Version 1)
Quarter: 2012Q4

REPORT INFORMATION
  Report Type: 
  Country: US (occurrence: US)
  Receive Date: 20121221
  Receipt Date: 20121221
  Transmission Date: 20130627
  Serious: Yes (Hospitalization)
  Sender: FDA-Public Use
  Company Number: US-PFIZER INC-2012322195

PATIENT
  Sex: Female

DRUGS (4)
  1. ZIPRASIDONE HCL [Suspect]
     Indication: SCHIZOAFFECTIVE DISORDER
     Dosage: 40 mg/day
  2. CLOZAPINE [Concomitant]
     Indication: SCHIZOAFFECTIVE DISORDER
     Dosage: UNK
  3. CLOZAPINE [Concomitant]
     Indication: PSYCHOSIS
  4. LITHIUM [Concomitant]
     Indication: SCHIZOAFFECTIVE DISORDER

REACTIONS (8)
  - Neuroleptic malignant syndrome [Unknown]
  - Rhabdomyolysis [Unknown]
  - Pancreatitis [Recovered/Resolved]
  - Hypertension [Unknown]
  - Depressed level of consciousness [Recovered/Resolved]
  - Hyperglycaemia [Recovered/Resolved]
  - Agitation [Recovered/Resolved]
  - Pyrexia [Unknown]
